FAERS Safety Report 9751906 (Version 2)
Quarter: 2014Q2

REPORT INFORMATION
  Report Type: Report from Study
  Country: CA (occurrence: CA)
  Receive Date: 20131213
  Receipt Date: 20140422
  Transmission Date: 20141212
  Serious: Yes (Other)
  Sender: FDA-Public Use
  Company Number: CA-JNJFOC-20131204615

PATIENT
  Age: 33 Year
  Sex: Female
  Weight: 40 kg

DRUGS (4)
  1. REMICADE [Suspect]
     Indication: COLITIS ULCERATIVE
     Route: 042
     Dates: start: 20111123, end: 20131016
  2. TYLENOL [Concomitant]
     Indication: PREMEDICATION
     Route: 048
  3. BENADRYL [Concomitant]
     Indication: PREMEDICATION
     Route: 048
  4. HYDROCORTISONE [Concomitant]
     Indication: PREMEDICATION
     Route: 042

REACTIONS (2)
  - Neoplasm malignant [Unknown]
  - Intestinal resection [Unknown]
